FAERS Safety Report 11051251 (Version 2)
Quarter: 2015Q2

REPORT INFORMATION
  Report Type: Spontaneous
  Country: US (occurrence: US)
  Receive Date: 20150421
  Receipt Date: 20150514
  Transmission Date: 20150821
  Serious: No
  Sender: FDA-Public Use
  Company Number: US-PFIZER INC-2015131065

PATIENT
  Age: 39 Year
  Sex: Female
  Weight: 57 kg

DRUGS (2)
  1. DEPO-PROVERA [Suspect]
     Active Substance: MEDROXYPROGESTERONE ACETATE
     Indication: CONTRACEPTION
     Dosage: 150 MG, EVERY 12 WEEKS
     Route: 030
     Dates: start: 20150202
  2. DEPO-PROVERA [Suspect]
     Active Substance: MEDROXYPROGESTERONE ACETATE
     Indication: MENSTRUAL CYCLE MANAGEMENT
     Dosage: 150 MG, UNK
     Route: 030
     Dates: start: 20150301

REACTIONS (3)
  - Drug hypersensitivity [Unknown]
  - Metrorrhagia [Not Recovered/Not Resolved]
  - Headache [Not Recovered/Not Resolved]

NARRATIVE: CASE EVENT DATE: 201503
